FAERS Safety Report 15376444 (Version 2)
Quarter: 2018Q3

REPORT INFORMATION
  Report Type: Report from Study
  Country: None (occurrence: US)
  Receive Date: 20180912
  Receipt Date: 20180921
  Transmission Date: 20181010
  Serious: Yes (Hospitalization)
  Sender: FDA-Public Use
  Company Number: US-ABBVIE-18P-163-2446234-00

PATIENT
  Age: 76 Year
  Sex: Female
  Weight: 59 kg

DRUGS (8)
  1. VENETOCLAX. [Suspect]
     Active Substance: VENETOCLAX
     Dosage: CYCLE 2+: DAYS 1?21 OF 28?DAY CYCLE
     Route: 048
     Dates: start: 20160222, end: 20180812
  2. DECITABINE. [Suspect]
     Active Substance: DECITABINE
     Dosage: DAYS 1?5 OF EACH 28?DAY CYCLE
     Route: 042
     Dates: start: 20180903
  3. VENETOCLAX. [Suspect]
     Active Substance: VENETOCLAX
     Route: 048
     Dates: start: 20160221, end: 20160221
  4. VENETOCLAX. [Suspect]
     Active Substance: VENETOCLAX
     Indication: ACUTE MYELOID LEUKAEMIA
     Route: 048
     Dates: start: 20160220, end: 20160220
  5. VENETOCLAX. [Suspect]
     Active Substance: VENETOCLAX
     Dosage: CYCLE 2+: DAYS 1?21 OF 28?DAY CYCLE
     Route: 048
     Dates: start: 20180903
  6. DECITABINE. [Suspect]
     Active Substance: DECITABINE
     Indication: ACUTE MYELOID LEUKAEMIA
     Dosage: DAYS 1?5 OF EACH 28?DAY CYCLE
     Route: 042
     Dates: start: 20160220, end: 20180812
  7. MICARDIS [Concomitant]
     Active Substance: TELMISARTAN
     Indication: HYPERTENSION
     Route: 048
     Dates: start: 2016
  8. ALLOPURINOL. [Concomitant]
     Active Substance: ALLOPURINOL
     Indication: PROPHYLAXIS
     Route: 048
     Dates: start: 20160218

REACTIONS (1)
  - Klebsiella bacteraemia [Recovered/Resolved]

NARRATIVE: CASE EVENT DATE: 20180806
